FAERS Safety Report 6087896-5 (Version None)
Quarter: 2009Q1

REPORT INFORMATION
  Report Type: 
  Country: None (occurrence: None)
  Receive Date: 20090223
  Receipt Date: 20090216
  Transmission Date: 20090719
  Serious: Yes (Hospitalization)
  Sender: FDA-Public Use
  Company Number: US-B.I. PHARMACEUTICALS,INC./RIDGEFIELD-2008-BP-18105BP

PATIENT
  Age: 82 Year
  Sex: Male

DRUGS (3)
  1. MIRAPEX [Suspect]
     Indication: RESTLESS LEGS SYNDROME
     Route: 048
     Dates: start: 20071101, end: 20081215
  2. VIAGRA [Concomitant]
  3. FLOMAX [Concomitant]
     Indication: PROSTATIC DISORDER

REACTIONS (8)
  - ABNORMAL BEHAVIOUR [None]
  - CERVICAL VERTEBRAL FRACTURE [None]
  - COMPULSIVE SEXUAL BEHAVIOUR [None]
  - NARCOLEPSY [None]
  - PARAPHILIA [None]
  - PROSTITUTE [None]
  - ROAD TRAFFIC ACCIDENT [None]
  - SUDDEN ONSET OF SLEEP [None]
